FAERS Safety Report 11701511 (Version 2)
Quarter: 2016Q1

REPORT INFORMATION
  Report Type: Spontaneous
  Country: US (occurrence: US)
  Receive Date: 20151105
  Receipt Date: 20160114
  Transmission Date: 20160525
  Serious: Yes (Other)
  Sender: FDA-Public Use
  Company Number: US-BAYER-2015-456264

PATIENT
  Age: 59 Year
  Sex: Male
  Weight: 88.44 kg

DRUGS (2)
  1. NITRO [Concomitant]
     Active Substance: NITROGLYCERIN
     Dosage: UNK UNK, PRN
     Route: 060
  2. GADAVIST [Suspect]
     Active Substance: GADOBUTROL
     Indication: NUCLEAR MAGNETIC RESONANCE IMAGING
     Dosage: 8.5 ML, ONCE, INTRAVENOUS ON RIGHT ANTECUBITE
     Route: 042
     Dates: start: 20151028, end: 20151028

REACTIONS (2)
  - Dyspnoea [Recovered/Resolved]
  - Chest pain [Unknown]

NARRATIVE: CASE EVENT DATE: 20151028
